FAERS Safety Report 14823889 (Version 1)
Quarter: 2018Q2

REPORT INFORMATION
  Report Type: Spontaneous
  Country: JP (occurrence: JP)
  Receive Date: 20180428
  Receipt Date: 20180428
  Transmission Date: 20180711
  Serious: Yes (Other)
  Sender: FDA-Public Use
  Company Number: JP-SUCAMPO PHARMACEUTICALS INC.-SPI201800402

PATIENT
  Age: 8 Decade
  Sex: Male

DRUGS (18)
  1. P-TOL [Suspect]
     Active Substance: FERRIC OXYHYDROXIDE
     Indication: CHRONIC KIDNEY DISEASE
  2. NESP [Concomitant]
     Active Substance: DARBEPOETIN ALFA
  3. UNKNOWN [Concomitant]
     Active Substance: UNSPECIFIED INGREDIENT
  4. UNKONWN [Concomitant]
  5. LINZESS [Suspect]
     Active Substance: LINACLOTIDE
     Dosage: 0.25 MG, UNK
     Route: 048
     Dates: start: 20170515, end: 20170519
  6. LANDSEN [Concomitant]
     Active Substance: CLONAZEPAM
  7. UNKONWN [Concomitant]
  8. P-TOL [Suspect]
     Active Substance: FERRIC OXYHYDROXIDE
     Indication: HYPERPHOSPHATAEMIA
     Dosage: 750 MG, UNK
     Route: 048
     Dates: start: 20170211, end: 20170531
  9. LINZESS [Suspect]
     Active Substance: LINACLOTIDE
     Indication: CONSTIPATION
     Dosage: 0.5 MG, UNK
     Route: 048
     Dates: start: 20170511, end: 20170514
  10. UNKONWN [Concomitant]
  11. UNKONWN [Concomitant]
  12. UNKONWN [Concomitant]
  13. UNKONWN [Concomitant]
  14. UNKONWN [Concomitant]
  15. AMITIZA [Suspect]
     Active Substance: LUBIPROSTONE
     Indication: CONSTIPATION
     Dosage: 24 MCG, UNK
     Route: 048
     Dates: start: 20170504, end: 20170510
  16. UNKONWN [Concomitant]
  17. SHAKUYAKUKANZOTO [Concomitant]
     Active Substance: HERBALS
  18. UNKONWN [Concomitant]

REACTIONS (6)
  - Vomiting [Unknown]
  - Diarrhoea [Unknown]
  - Decreased appetite [Unknown]
  - Constipation [Unknown]
  - Faeces discoloured [Unknown]
  - Duodenal ulcer haemorrhage [Unknown]

NARRATIVE: CASE EVENT DATE: 20170502
